FAERS Safety Report 21155376 (Version 1)
Quarter: 2022Q3

REPORT INFORMATION
  Report Type: Spontaneous
  Country: IT (occurrence: IT)
  Receive Date: 20220801
  Receipt Date: 20220801
  Transmission Date: 20221027
  Serious: Yes (Other)
  Sender: FDA-Public Use
  Company Number: None

PATIENT
  Age: 82 Year
  Sex: Male

DRUGS (8)
  1. FILGRASTIM [Suspect]
     Active Substance: FILGRASTIM
     Indication: Neutropenia
     Dosage: FILGRASTIM 0.3 MU 1 VIAL S.C. ON DAY 1/6 AND 1 FIAL S.C. ON DAY 3/6U
     Route: 065
     Dates: start: 20220601, end: 20220603
  2. LEVOFLOXACIN [Concomitant]
     Active Substance: LEVOFLOXACIN
     Indication: Neutropenia
     Dosage: 750 MILLIGRAM DAILY; 750 MG / DAY
     Dates: start: 20220601, end: 20220612
  3. LANSOPRAZOLE [Concomitant]
     Active Substance: LANSOPRAZOLE
     Indication: Product used for unknown indication
     Dosage: 30 MILLIGRAM DAILY; 30 MG / DAY,LANSOPRAZOLO
  4. FUROSEMIDE [Concomitant]
     Active Substance: FUROSEMIDE
     Indication: Oedema
     Dosage: 25 MILLIGRAM DAILY; 25 MG / DAY TO BE MODULATED
     Dates: start: 202201
  5. ACYCLOVIR [Concomitant]
     Active Substance: ACYCLOVIR
     Indication: Prophylaxis
     Dosage: 800 MILLIGRAM DAILY; 400 MG BID (ONGOING)
     Dates: start: 202010
  6. BUDESONIDE [Concomitant]
     Active Substance: BUDESONIDE
     Indication: Crohn^s disease
     Dosage: 2 MILLIGRAM DAILY; 2 MG 1 TABLET PER DAY (CHRONIC TP)
  7. ALDACTONE [Concomitant]
     Active Substance: SPIRONOLACTONE
     Indication: Oedema
     Dosage: 25 MILLIGRAM DAILY; 25 MG / DAY
     Dates: start: 20220525
  8. POSACONAZOLE [Concomitant]
     Active Substance: POSACONAZOLE
     Indication: Prophylaxis
     Dosage: 300 MILLIGRAM DAILY; 300 MG / DAY, TAKING IN PROGRESS, POSACONAZOLO

REACTIONS (1)
  - Hallucination [Recovered/Resolved]

NARRATIVE: CASE EVENT DATE: 20220601
